FAERS Safety Report 13864641 (Version 1)
Quarter: 2017Q3

REPORT INFORMATION
  Report Type: Spontaneous
  Country: US (occurrence: None)
  Receive Date: 20170813
  Receipt Date: 20170813
  Transmission Date: 20171127
  Serious: No
  Sender: FDA-Public Use
  Company Number: None

PATIENT
  Age: 39 Year
  Sex: Female

DRUGS (1)
  1. HUMIRA [Suspect]
     Active Substance: ADALIMUMAB
     Indication: COLITIS
     Dosage: INJECT 4 PENS, IN A SINGLE DOSE
     Route: 058
     Dates: start: 20170627, end: 20170627

REACTIONS (2)
  - Pneumonia [None]
  - Hypersensitivity [None]

NARRATIVE: CASE EVENT DATE: 20170703
